FAERS Safety Report 9094948 (Version 1)
Quarter: 2013Q1

REPORT INFORMATION
  Report Type: Spontaneous
  Country: US (occurrence: None)
  Receive Date: 20130123
  Receipt Date: 20130123
  Transmission Date: 20140127
  Serious: Yes (Other)
  Sender: FDA-Public Use
  Company Number: AUR-APL-2013-00552

PATIENT
  Age: 58 Year
  Sex: Female
  Weight: 99.77 kg

DRUGS (5)
  1. LISINOPRIL (LISINOPRIL) [Suspect]
     Indication: HYPERTENSION
     Dates: start: 201203, end: 201203
  2. LYRICA (PREGABALIN) [Suspect]
     Indication: FIBROMYALGIA
     Dosage: 150 MG (75 MG, 2 IN 1 D), ORAL
     Route: 048
     Dates: end: 20121231
  3. HYDROCODONE (HYDROCODONE) [Concomitant]
     Indication: BACK PAIN
  4. LOSARTAN (LOSARTAN) [Concomitant]
     Indication: HYPERTENSION
  5. FLUOXETINE (FLUOXETINE) [Concomitant]
     Indication: PRODUCT USED FOR UNKNOWN INDICATION

REACTIONS (5)
  - Cough [None]
  - Neuralgia [None]
  - Chills [None]
  - Hot flush [None]
  - Rib fracture [None]
